FAERS Safety Report 22377013 (Version 10)
Quarter: 2024Q1

REPORT INFORMATION
  Report Type: Report from Study
  Country: US (occurrence: US)
  Receive Date: 20230529
  Receipt Date: 20240206
  Transmission Date: 20240410
  Serious: No
  Sender: FDA-Public Use
  Company Number: US-002147023-NVSC2023US118889

PATIENT
  Sex: Female

DRUGS (1)
  1. KISQALI [Suspect]
     Active Substance: RIBOCICLIB
     Indication: Product used for unknown indication
     Dosage: UNK
     Route: 065

REACTIONS (20)
  - Mood swings [Unknown]
  - Eating disorder [Unknown]
  - Depression [Unknown]
  - Chest pain [Unknown]
  - Vision blurred [Unknown]
  - Retching [Unknown]
  - Weight decreased [Unknown]
  - White blood cell count decreased [Unknown]
  - Tremor [Unknown]
  - Nausea [Unknown]
  - Fatigue [Unknown]
  - Dyspnoea [Unknown]
  - Constipation [Unknown]
  - Alopecia [Unknown]
  - Pruritus [Unknown]
  - Abdominal pain [Unknown]
  - Rash [Unknown]
  - Asthenia [Unknown]
  - Anaemia [Unknown]
  - Haemoglobin decreased [Unknown]
